FAERS Safety Report 8610219-1 (Version None)
Quarter: 2012Q3

REPORT INFORMATION
  Report Type: 
  Country: None (occurrence: None)
  Receive Date: 20120822
  Receipt Date: 20120720
  Transmission Date: 20120928
  Serious: Yes (Hospitalization)
  Sender: FDA-Public Use
  Company Number: JP-009507513-1202USA01432

PATIENT

DRUGS (4)
  1. PLAVIX [Concomitant]
     Route: 048
  2. PLAVIX [Concomitant]
     Dosage: DAILY DOSAGE UNKNOWN
  3. JANUVIA [Suspect]
     Indication: DIABETES MELLITUS
     Dosage: 50 MG, QD
     Route: 048
  4. JANUVIA [Suspect]
     Indication: DIABETES MELLITUS
     Route: 048

REACTIONS (1)
  - INTERSTITIAL LUNG DISEASE [None]
